FAERS Safety Report 7761872-6 (Version None)
Quarter: 2011Q3

REPORT INFORMATION
  Report Type: 
  Country: None (occurrence: None)
  Receive Date: 20110920
  Receipt Date: 20110908
  Transmission Date: 20111222
  Serious: Yes (Other)
  Sender: FDA-Public Use
  Company Number: PL-GENZYME-THYM-1002733

PATIENT
  Age: 47 Year
  Sex: Male
  Weight: 80 kg

DRUGS (2)
  1. THYMOGLOBULIN [Suspect]
     Indication: PROPHYLAXIS AGAINST TRANSPLANT REJECTION
     Dosage: 50 MG, ONCE
     Route: 042
     Dates: start: 20110823, end: 20110823
  2. THYMOGLOBULIN [Suspect]
     Dosage: 100 MG, QD
     Route: 042
     Dates: start: 20110825, end: 20110828

REACTIONS (1)
  - OPERATIVE HAEMORRHAGE [None]
